FAERS Safety Report 17486224 (Version 4)
Quarter: 2020Q2

REPORT INFORMATION
  Report Type: Report from Study
  Country: US (occurrence: US)
  Receive Date: 20200303
  Receipt Date: 20200401
  Transmission Date: 20200713
  Serious: Yes (Other)
  Sender: FDA-Public Use
  Company Number: US-ROCHE-2561065

PATIENT
  Age: 60 Year
  Sex: Male

DRUGS (2)
  1. ESBRIET [Suspect]
     Active Substance: PIRFENIDONE
     Indication: IDIOPATHIC PULMONARY FIBROSIS
     Route: 048
  2. ESBRIET [Suspect]
     Active Substance: PIRFENIDONE
     Route: 048
     Dates: start: 201904

REACTIONS (6)
  - Nightmare [Unknown]
  - Drug ineffective [Unknown]
  - Renal disorder [Recovered/Resolved]
  - Insomnia [Unknown]
  - Diabetes mellitus [Unknown]
  - Renal impairment [Unknown]

NARRATIVE: CASE EVENT DATE: 20200318
